FAERS Safety Report 21440937 (Version 1)
Quarter: 2022Q4

REPORT INFORMATION
  Report Type: Spontaneous
  Country: US (occurrence: None)
  Receive Date: 20221010
  Receipt Date: 20221010
  Transmission Date: 20230113
  Serious: Yes (Other)
  Sender: FDA-Public Use
  Company Number: None

PATIENT
  Age: 73 Year
  Sex: Male
  Weight: 92 kg

DRUGS (6)
  1. PAXLOVID [Suspect]
     Active Substance: NIRMATRELVIR\RITONAVIR
     Indication: COVID-19
     Dates: start: 20220629, end: 20220702
  2. BUSPAR [Concomitant]
     Active Substance: BUSPIRONE HYDROCHLORIDE
     Dates: start: 20200101
  3. ATORVASTATIN [Concomitant]
     Active Substance: ATORVASTATIN
  4. LOSARTAN [Concomitant]
     Active Substance: LOSARTAN
  5. CLOPIDOGREL [Concomitant]
     Active Substance: CLOPIDOGREL BISULFATE
  6. MYRBETRIQ [Concomitant]
     Active Substance: MIRABEGRON

REACTIONS (5)
  - Nightmare [None]
  - Hallucination [None]
  - Sleep disorder [None]
  - Abdominal pain [None]
  - Retching [None]

NARRATIVE: CASE EVENT DATE: 20220704
